FAERS Safety Report 23541917 (Version 1)
Quarter: 2024Q1

REPORT INFORMATION
  Report Type: Spontaneous
  Country: GB (occurrence: GB)
  Receive Date: 20240220
  Receipt Date: 20240220
  Transmission Date: 20240409
  Serious: Yes (Other)
  Sender: FDA-Public Use
  Company Number: None

PATIENT
  Age: 71 Year
  Sex: Female
  Weight: 75 kg

DRUGS (4)
  1. EZETIMIBE [Suspect]
     Active Substance: EZETIMIBE
     Indication: Ill-defined disorder
     Dosage: ( TO BE CRUSHED AND MIXED IN WA,
     Route: 065
     Dates: start: 20231023, end: 20240131
  2. ADCAL [Concomitant]
     Indication: Ill-defined disorder
     Dosage: CHEW ONE TABLET TWICE A DAY, TO HELP PREVENT OS, 2 DOSAGE FORMS DAILY
     Dates: start: 20240131
  3. ALBUTEROL [Concomitant]
     Active Substance: ALBUTEROL
     Indication: Ill-defined disorder
     Dosage: INHALE TWO DOSES UP TO FOUR TIMES A DAY, WHEN R
     Route: 055
     Dates: start: 20230810
  4. BECLOMETHASONE\FORMOTEROL [Concomitant]
     Active Substance: BECLOMETHASONE\FORMOTEROL
     Indication: Ill-defined disorder
     Dosage: INHALE TWO PUFFS TWICE DAILY, 4 DOSAGE FORMS DAILY
     Route: 055
     Dates: start: 20230810

REACTIONS (2)
  - Headache [Unknown]
  - Bronchospasm [Unknown]

NARRATIVE: CASE EVENT DATE: 20240131
